FAERS Safety Report 5121169-X (Version None)
Quarter: 2006Q4

REPORT INFORMATION
  Report Type: 
  Country: None (occurrence: None)
  Receive Date: 20061002
  Receipt Date: 20060918
  Transmission Date: 20070319
  Serious: No
  Sender: FDA-Public Use
  Company Number: TPA2006A00206

PATIENT
  Age: 82 Year
  Sex: Male
  Weight: 80.7403 kg

DRUGS (4)
  1. ROZEREM [Suspect]
     Indication: INITIAL INSOMNIA
     Dosage: 8-16 MG, QHS, PER ORAL
     Route: 048
     Dates: start: 20051229, end: 20060420
  2. ALLEGRA [Concomitant]
  3. LUNESTA [Concomitant]
  4. LANOXIN [Concomitant]

REACTIONS (6)
  - ABNORMAL DREAMS [None]
  - DRUG INEFFECTIVE [None]
  - MENTAL IMPAIRMENT [None]
  - MIDDLE INSOMNIA [None]
  - OVERDOSE [None]
  - POOR QUALITY SLEEP [None]
